FAERS Safety Report 18701715 (Version 2)
Quarter: 2021Q1

REPORT INFORMATION
  Report Type: Spontaneous
  Country: LT (occurrence: LT)
  Receive Date: 20210105
  Receipt Date: 20210210
  Transmission Date: 20210419
  Serious: Yes (Life-Threatening, Hospitalization, Other)
  Sender: FDA-Public Use
  Company Number: NVSC2020LT337540

PATIENT
  Age: 41 Year
  Sex: Female
  Weight: 90 kg

DRUGS (2)
  1. METOPROLOL. [Suspect]
     Active Substance: METOPROLOL
     Indication: SUICIDE ATTEMPT
     Dosage: 10 TAB
     Route: 048
     Dates: start: 20201130, end: 20201130
  2. KVENTIAX [Suspect]
     Active Substance: QUETIAPINE FUMARATE
     Indication: SUICIDE ATTEMPT
     Dosage: 10 TAB
     Route: 048
     Dates: start: 20201130, end: 20201130

REACTIONS (4)
  - Hypotension [Recovering/Resolving]
  - Suicide attempt [Recovering/Resolving]
  - Completed suicide [Unknown]
  - Off label use [Recovering/Resolving]

NARRATIVE: CASE EVENT DATE: 20201130
